FAERS Safety Report 16512926 (Version 1)
Quarter: 2019Q3

REPORT INFORMATION
  Report Type: Spontaneous
  Country: US (occurrence: US)
  Receive Date: 20190702
  Receipt Date: 20190702
  Transmission Date: 20191004
  Serious: Yes (Other)
  Sender: FDA-Public Use
  Company Number: US-PFIZER INC-2019281430

PATIENT
  Age: 58 Year
  Sex: Female

DRUGS (1)
  1. IBRANCE [Suspect]
     Active Substance: PALBOCICLIB
     Indication: BREAST CANCER FEMALE
     Dosage: 100 MG, UNK

REACTIONS (6)
  - Eustachian tube dysfunction [Unknown]
  - Arteriosclerosis [Unknown]
  - Mastoiditis [Unknown]
  - Cerebral atrophy [Unknown]
  - Headache [Unknown]
  - Retention cyst [Unknown]
